FAERS Safety Report 16461047 (Version 1)
Quarter: 2019Q2

REPORT INFORMATION
  Report Type: Spontaneous
  Country: CZ (occurrence: CZ)
  Receive Date: 20190621
  Receipt Date: 20190621
  Transmission Date: 20190711
  Serious: Yes (Death)
  Sender: FDA-Public Use
  Company Number: CZ-ROCHE-2339641

PATIENT
  Age: 56 Year
  Sex: Female

DRUGS (7)
  1. ETOPOSIDE. [Concomitant]
     Active Substance: ETOPOSIDE
     Indication: CHRONIC LYMPHOCYTIC LEUKAEMIA
     Dosage: PART OF R-ESHAP CHEMOTHERAPY
     Route: 065
  2. CISPLATIN. [Concomitant]
     Active Substance: CISPLATIN
     Indication: CHRONIC LYMPHOCYTIC LEUKAEMIA
     Dosage: PART OF R-ESHAP CHEMOTHERAPY
     Route: 065
  3. FLUDARABINE [Suspect]
     Active Substance: FLUDARABINE PHOSPHATE
     Indication: CHRONIC LYMPHOCYTIC LEUKAEMIA
     Dosage: PART OF FCR CHEMOTHERAPY
     Route: 065
     Dates: start: 200503
  4. CYCLOPHOSPHAMIDE. [Suspect]
     Active Substance: CYCLOPHOSPHAMIDE
     Indication: CHRONIC LYMPHOCYTIC LEUKAEMIA
     Dosage: PART OF FCR CHEMOTHERAPY
     Route: 065
     Dates: start: 200503
  5. ARA-C [Concomitant]
     Active Substance: CYTARABINE
     Indication: CHRONIC LYMPHOCYTIC LEUKAEMIA
     Dosage: PART OF R-ESHAP CHEMOTHERAPY; HIGH-DOSE
     Route: 065
  6. RITUXIMAB. [Suspect]
     Active Substance: RITUXIMAB
     Indication: CHRONIC LYMPHOCYTIC LEUKAEMIA
     Dosage: PART OF FCR AND R-ESHAP CHEMOTHERAPY
     Route: 065
     Dates: start: 200503
  7. SOLU-MEDROL [Concomitant]
     Active Substance: METHYLPREDNISOLONE SODIUM SUCCINATE
     Indication: CHRONIC LYMPHOCYTIC LEUKAEMIA
     Dosage: PART OF R-ESHAP CHEMOTHERAPY
     Route: 065

REACTIONS (2)
  - Drug resistance [Fatal]
  - Richter^s syndrome [Fatal]
